FAERS Safety Report 9155433 (Version 1)
Quarter: 2013Q1

REPORT INFORMATION
  Report Type: Spontaneous
  Country: US (occurrence: US)
  Receive Date: 20130311
  Receipt Date: 20130311
  Transmission Date: 20140127
  Serious: Yes (Death)
  Sender: FDA-Public Use
  Company Number: US-NICOBRDEVP-2013-03788

PATIENT
  Age: 61 Year
  Sex: Male

DRUGS (8)
  1. CYCLOSPORINE [Suspect]
     Indication: HEART TRANSPLANT
     Dosage: UNK, UNKNOWN
     Route: 065
  2. AZATHIOPRINE (UNKNOWN) [Suspect]
     Indication: HEART TRANSPLANT
     Dosage: UNK, UNKNOWN
     Route: 065
  3. PREDNISONE (UNKNOWN) [Suspect]
     Indication: HEART TRANSPLANT
     Dosage: UNK, UNKNOWN
     Route: 065
  4. TACROLIMUS (UNKNOWN) [Suspect]
     Indication: RENAL TRANSPLANT
     Dosage: UNK, UNKNOWN
     Route: 065
  5. MYCOPHENOLATE MOFETIL (UNKNOWN) [Suspect]
     Indication: RENAL TRANSPLANT
     Dosage: UNK, UNKNOWN
     Route: 065
  6. SIROLIMUS [Suspect]
     Indication: HEART TRANSPLANT
     Dosage: UNK, UNKNOWN
     Route: 065
  7. MUROMONAB-CD3 [Suspect]
     Indication: HEART TRANSPLANT
     Dosage: UNK, UNKNOWN
     Route: 065
  8. VALGANCICLOVIR [Concomitant]
     Indication: ANTIVIRAL PROPHYLAXIS
     Dosage: UNK, UNKNOWN
     Route: 065

REACTIONS (3)
  - Squamous cell carcinoma of lung [Fatal]
  - Squamous cell carcinoma of skin [Fatal]
  - Pulmonary fibrosis [Fatal]
